FAERS Safety Report 8090464-7 (Version None)
Quarter: 2012Q1

REPORT INFORMATION
  Report Type: 
  Country: None (occurrence: None)
  Receive Date: 20120129
  Receipt Date: 20111118
  Transmission Date: 20120608
  Serious: Yes (Hospitalization)
  Sender: FDA-Public Use
  Company Number: US-ABBOTT-11P-163-0876302-00

PATIENT
  Sex: Male
  Weight: 112.59 kg

DRUGS (23)
  1. ACYCLOVIR [Concomitant]
     Indication: ORAL HERPES
  2. SOMA [Concomitant]
     Indication: PRODUCT USED FOR UNKNOWN INDICATION
  3. HUMIRA [Suspect]
  4. SYMBICORT [Concomitant]
     Indication: PRODUCT USED FOR UNKNOWN INDICATION
  5. HYDROCHLOROTHIAZIDE [Concomitant]
     Indication: HYPERTENSION
  6. AMLODIPINE [Concomitant]
     Indication: HYPERTENSION
  7. VENTOLIN [Concomitant]
     Indication: PRODUCT USED FOR UNKNOWN INDICATION
  8. HUMIRA [Suspect]
     Indication: PSORIATIC ARTHROPATHY
     Dates: start: 20111104
  9. VERAPAMIL [Concomitant]
     Indication: HYPERTENSION
  10. FISH OIL [Concomitant]
     Indication: PRODUCT USED FOR UNKNOWN INDICATION
  11. VYVANSE [Concomitant]
     Indication: ATTENTION DEFICIT/HYPERACTIVITY DISORDER
  12. PRASTERONE [Concomitant]
     Indication: PRODUCT USED FOR UNKNOWN INDICATION
  13. FINASTERIDE [Concomitant]
     Indication: PROPHYLAXIS
  14. TESTOSTERONE INJECTIONS [Concomitant]
     Indication: PRODUCT USED FOR UNKNOWN INDICATION
  15. PRAVASTATIN [Concomitant]
     Indication: BLOOD CHOLESTEROL INCREASED
  16. OXYCODONE HCL [Concomitant]
     Indication: PRODUCT USED FOR UNKNOWN INDICATION
  17. COREG [Concomitant]
     Indication: HYPERTENSION
  18. XANAX [Concomitant]
     Indication: ANXIETY
  19. PARAFON FORTE [Concomitant]
     Indication: MUSCLE SPASMS
  20. CYMBALTA [Concomitant]
     Indication: PRODUCT USED FOR UNKNOWN INDICATION
  21. VITAMIN D [Concomitant]
     Indication: PRODUCT USED FOR UNKNOWN INDICATION
  22. FOLIC ACID [Concomitant]
     Indication: PRODUCT USED FOR UNKNOWN INDICATION
  23. FINASTERIDE [Concomitant]
     Indication: PROSTATOMEGALY

REACTIONS (5)
  - CORNEAL DEGENERATION [None]
  - PNEUMONIA [None]
  - PSORIATIC ARTHROPATHY [None]
  - VISION BLURRED [None]
  - GLAUCOMA [None]
